FAERS Safety Report 5073540-2 (Version None)
Quarter: 2006Q3

REPORT INFORMATION
  Report Type: 
  Country: None (occurrence: None)
  Receive Date: 20060717
  Receipt Date: 20051221
  Transmission Date: 20061208
  Serious: No
  Sender: FDA-Public Use
  Company Number: 2005002435

PATIENT
  Age: 79 Year
  Sex: Female
  Weight: 61.2356 kg

DRUGS (3)
  1. TARCEVA [Suspect]
     Indication: NON-SMALL CELL LUNG CANCER
     Dosage: 150 MG (QD), ORAL
     Route: 048
  2. SIMVASTATIN [Concomitant]
  3. NEXIUM [Concomitant]

REACTIONS (2)
  - DIARRHOEA [None]
  - DYSGEUSIA [None]
